FAERS Safety Report 5717560-0 (Version None)
Quarter: 2008Q2

REPORT INFORMATION
  Report Type: 
  Country: None (occurrence: None)
  Receive Date: 20080425
  Receipt Date: 20080421
  Transmission Date: 20081010
  Serious: Yes (Other)
  Sender: FDA-Public Use
  Company Number: GB-JNJFOC-20080103613

PATIENT
  Sex: Female
  Weight: 67 kg

DRUGS (3)
  1. RISPERDAL [Suspect]
     Indication: PSYCHOTIC DISORDER
     Route: 048
  2. RISPERDAL [Suspect]
     Indication: DELUSIONAL DISORDER, UNSPECIFIED TYPE
     Route: 048
  3. CARBAMAZEPINE [Concomitant]
     Indication: DRUG THERAPY
     Route: 065

REACTIONS (4)
  - DYSPNOEA [None]
  - HYPOTHYROIDISM [None]
  - PITTING OEDEMA [None]
  - WEIGHT INCREASED [None]
